FAERS Safety Report 7952619-9 (Version None)
Quarter: 2011Q4

REPORT INFORMATION
  Report Type: 
  Country: None (occurrence: None)
  Receive Date: 20111201
  Receipt Date: 20111122
  Transmission Date: 20120403
  Serious: Yes (Other)
  Sender: FDA-Public Use
  Company Number: TR-JNJFOC-20111101798

PATIENT
  Sex: Female

DRUGS (4)
  1. XARELTO [Suspect]
     Indication: KNEE ARTHROPLASTY
     Route: 048
  2. XARELTO [Suspect]
     Indication: PROPHYLAXIS
     Route: 048
  3. ANTIDIABETIC [Concomitant]
     Indication: ILL-DEFINED DISORDER
  4. ANTIHYPERTENSIVE [Concomitant]

REACTIONS (4)
  - VERTIGO [None]
  - ASTHENIA [None]
  - VOMITING [None]
  - NAUSEA [None]
